FAERS Safety Report 7271085-2 (Version None)
Quarter: 2011Q1

REPORT INFORMATION
  Report Type: 
  Country: None (occurrence: None)
  Receive Date: 20110202
  Receipt Date: 20110124
  Transmission Date: 20110831
  Serious: Yes (Hospitalization, Disabling)
  Sender: FDA-Public Use
  Company Number: US-ASTRAZENECA-2011SE03896

PATIENT
  Age: 82 Year
  Sex: Male

DRUGS (13)
  1. GLIPIZIDE [Concomitant]
     Indication: DIABETES MELLITUS
  2. POTASSIUM [Concomitant]
  3. CALCIUM [Concomitant]
  4. LAXATIVES [Concomitant]
  5. SYMBICORT [Suspect]
     Indication: CHRONIC OBSTRUCTIVE PULMONARY DISEASE
     Dosage: TWO PUFFS BID
     Route: 055
     Dates: start: 20100101
  6. PROAIR HFA [Concomitant]
     Indication: CHRONIC OBSTRUCTIVE PULMONARY DISEASE
     Dosage: PRN
  7. AMLODIPINE [Concomitant]
     Indication: HYPERTENSION
  8. METOPROLOL [Concomitant]
     Indication: HYPERTENSION
  9. ARMD FORMULA [Concomitant]
     Indication: EYE DISORDER
  10. HUMALOG [Concomitant]
     Indication: DIABETES MELLITUS
     Dosage: PRN
  11. LUCENTIS [Concomitant]
     Indication: EYE DISORDER
     Dosage: Q4WK
  12. STOOL SOFTENER [Concomitant]
  13. FUROSEMIDE [Concomitant]
     Indication: HYPERTENSION

REACTIONS (2)
  - HERNIA REPAIR [None]
  - BLINDNESS UNILATERAL [None]
